FAERS Safety Report 6201450-3 (Version None)
Quarter: 2009Q2

REPORT INFORMATION
  Report Type: 
  Country: None (occurrence: None)
  Receive Date: 20090526
  Receipt Date: 20090521
  Transmission Date: 20091009
  Serious: Yes (Death, Hospitalization)
  Sender: FDA-Public Use
  Company Number: BR-ROCHE-625072

PATIENT
  Sex: Female
  Weight: 48 kg

DRUGS (13)
  1. CAPECITABINE [Suspect]
     Route: 065
  2. BERLISON [Suspect]
     Dosage: PERMANENTLY DISCONTINUED
     Route: 061
     Dates: start: 20090312, end: 20090329
  3. LEVOTHYROXINE SODIUM [Concomitant]
     Dates: start: 20040101
  4. LEVOTHYROXINE SODIUM [Concomitant]
     Dates: start: 20090329, end: 20090404
  5. AAS [Concomitant]
     Dates: start: 20040101, end: 20090403
  6. PROPRANOLOL HYDROCHLORIDE [Concomitant]
     Dates: start: 20040101
  7. PROPRANOLOL HYDROCHLORIDE [Concomitant]
     Dates: start: 20090329, end: 20090404
  8. ONDANSETRON [Concomitant]
     Dates: start: 20090329, end: 20090330
  9. ENOXAPARIN SODIUM [Concomitant]
     Dates: start: 20090331, end: 20090404
  10. METRONIDAZOLE [Concomitant]
     Dates: start: 20090401, end: 20090404
  11. ESCOPOLAMINA [Concomitant]
     Dates: start: 20090402, end: 20090404
  12. NISTATIN [Concomitant]
     Dates: start: 20090403, end: 20090404
  13. FLUCONAZOLE [Concomitant]
     Dates: start: 20090403, end: 20090404

REACTIONS (2)
  - DIARRHOEA [None]
  - SUDDEN DEATH [None]
